FAERS Safety Report 8891131 (Version 1)
Quarter: 2012Q4

REPORT INFORMATION
  Report Type: 
  Country: US (occurrence: US)
  Receive Date: 20121107
  Receipt Date: 20121107
  Transmission Date: 20130627
  Serious: Yes (Hospitalization)
  Sender: FDA-Public Use
  Company Number: US-B.I. PHARMACEUTICALS,INC./RIDGEFIELD-2012-BP-27092BP

PATIENT
  Age: 51 None
  Sex: Male
  Weight: 100 kg

DRUGS (8)
  1. PRADAXA [Suspect]
     Indication: ATRIAL FIBRILLATION
     Dosage: 300 mg
     Route: 048
     Dates: start: 201105
  2. XANAX [Concomitant]
     Indication: ANXIETY
     Dosage: 3 mg
     Route: 048
     Dates: start: 2009
  3. SERTRALINE [Concomitant]
     Indication: DEPRESSION
     Dosage: 100 mg
     Route: 048
  4. PROPRANOLOL [Concomitant]
     Indication: CARDIAC DISORDER
     Dosage: 300 mg
     Route: 048
     Dates: start: 201111
  5. DEPAKOTE [Concomitant]
     Dosage: 2000 mg
     Route: 048
  6. GLIPIZIDE [Concomitant]
     Indication: TYPE 2 DIABETES MELLITUS
     Dosage: 5 mg
     Route: 048
  7. GLIPIZIDE [Concomitant]
     Route: 048
  8. SIMVASTATIN [Concomitant]
     Indication: BLOOD CHOLESTEROL INCREASED
     Dosage: 40 mg
     Route: 048
     Dates: start: 2010

REACTIONS (5)
  - Pneumonia [Recovered/Resolved]
  - Cough [Recovered/Resolved]
  - Anxiety [Not Recovered/Not Resolved]
  - Blood pressure increased [Not Recovered/Not Resolved]
  - Blood glucose increased [Not Recovered/Not Resolved]
